FAERS Safety Report 7382181-3 (Version None)
Quarter: 2011Q1

REPORT INFORMATION
  Report Type: 
  Country: None (occurrence: None)
  Receive Date: 20110329
  Receipt Date: 20110323
  Transmission Date: 20110831
  Serious: Yes (Other)
  Sender: FDA-Public Use
  Company Number: US-GENENTECH-256757

PATIENT
  Sex: Female
  Weight: 80 kg

DRUGS (25)
  1. BIAXIN [Concomitant]
     Indication: ASTHMA
  2. IMMUNOTHERAPY (AEROALLERGENS + DUST MITE) [Concomitant]
     Indication: PRODUCT USED FOR UNKNOWN INDICATION
     Dosage: UNK
     Dates: start: 20050901
  3. PROAIR HFA [Concomitant]
     Dosage: 2 PUFF, BID
     Dates: start: 20050721
  4. BIAXIN [Concomitant]
     Indication: HYPERSENSITIVITY
     Dosage: 500 MG, QD
     Route: 048
     Dates: start: 20060101
  5. FLONASE [Concomitant]
     Indication: RHINITIS ALLERGIC
     Dosage: 2 UNK, QAM
     Route: 045
     Dates: start: 20050721
  6. UNIPHYL [Concomitant]
     Indication: ASTHMA
     Dosage: 400 MG, QPM
     Route: 048
     Dates: start: 20060328
  7. ALVESCO [Concomitant]
     Indication: ASTHMA
     Dosage: UNK
     Dates: start: 20080923
  8. ALVESCO [Concomitant]
     Dosage: 160 A?G, BID
     Dates: start: 20090101
  9. FORADIL [Concomitant]
     Indication: ASTHMA
     Dosage: 1 PUFF, Q12H
     Dates: start: 20060101
  10. PREDNISONE [Concomitant]
     Indication: PRODUCT USED FOR UNKNOWN INDICATION
     Dosage: 40 MG, UNK
     Route: 048
     Dates: start: 20080213, end: 20080220
  11. ASTELIN [Concomitant]
     Indication: RHINITIS ALLERGIC
     Dosage: 2 UNK, BID
     Route: 045
     Dates: start: 20040101
  12. PROAIR HFA [Concomitant]
     Indication: ASTHMA
     Dosage: 2 PUFF, PRN
     Dates: start: 20050721
  13. ZYFLO CR [Concomitant]
     Indication: HYPERSENSITIVITY
  14. THEOPHYLLINE [Concomitant]
     Indication: ASTHMA
     Dosage: 2 TABLET, QD
     Route: 048
     Dates: start: 20050101
  15. SPIRIVA [Concomitant]
     Indication: ASTHMA
     Dosage: 18 A?G, QD
     Dates: start: 20050901
  16. VOSPIRE ER [Concomitant]
     Indication: PRODUCT USED FOR UNKNOWN INDICATION
     Dosage: 4 MG, TID
     Route: 048
     Dates: start: 20051101
  17. ZYRTEC [Concomitant]
     Indication: RHINITIS ALLERGIC
     Dosage: 10 MG, QD
     Route: 048
     Dates: start: 20060821
  18. XOLAIR [Suspect]
     Indication: ASTHMA
     Dosage: 150 MG, Q2W
     Route: 030
     Dates: start: 20060811, end: 20080214
  19. QVAR 40 [Concomitant]
     Indication: ASTHMA
     Dosage: 5 PUFF, BID
     Dates: start: 20070830, end: 20080923
  20. ZYFLO CR [Concomitant]
     Indication: ASTHMA
     Dosage: 600 MG, BID
     Route: 048
     Dates: start: 20090101
  21. ALLEGRA [Concomitant]
     Indication: RHINITIS ALLERGIC
     Dosage: 180 MG, QD
     Route: 048
     Dates: start: 20040101
  22. ADVAIR DISKUS 100/50 [Concomitant]
     Indication: PRODUCT USED FOR UNKNOWN INDICATION
  23. ALBUTEROL [Concomitant]
     Indication: PRODUCT USED FOR UNKNOWN INDICATION
  24. XOPENEX [Concomitant]
     Indication: PRODUCT USED FOR UNKNOWN INDICATION
     Dosage: 1.25 MG, BID
     Dates: start: 20080101
  25. FLUTICASONE PROPIONATE [Concomitant]
     Indication: HYPERSENSITIVITY
     Dosage: UNK
     Dates: start: 20040101

REACTIONS (4)
  - ANAPHYLACTIC REACTION [None]
  - CHEST DISCOMFORT [None]
  - URTICARIA [None]
  - RASH [None]
